FAERS Safety Report 22363797 (Version 1)
Quarter: 2023Q2

REPORT INFORMATION
  Report Type: Spontaneous
  Country: FR (occurrence: FR)
  Receive Date: 20230525
  Receipt Date: 20230525
  Transmission Date: 20230721
  Serious: Yes (Hospitalization)
  Sender: FDA-Public Use
  Company Number: FR-002147023-PHHY2015FR067694

PATIENT
  Age: 14 Year
  Sex: Female

DRUGS (5)
  1. RISPERIDONE [Interacting]
     Active Substance: RISPERIDONE
     Indication: Psychiatric symptom
     Dosage: 2 MILLIGRAM, ONCE A DAY
     Route: 048
  2. FLUOXETINE [Interacting]
     Active Substance: FLUOXETINE HYDROCHLORIDE
     Indication: Psychiatric symptom
     Dosage: 30 MILLIGRAM, ONCE A DAY
     Route: 048
  3. CARBAMAZEPINE [Interacting]
     Active Substance: CARBAMAZEPINE
     Indication: Impulsive behaviour
     Dosage: 200 MILLIGRAM, ONCE A DAY
     Route: 065
  4. CARBAMAZEPINE [Interacting]
     Active Substance: CARBAMAZEPINE
     Indication: Affect lability
     Dosage: 800 MILLIGRAM, ONCE A DAY (400 MG, BID, DAY 2 (IN 2 SEPARATE DOSES)
     Route: 065
  5. CARBAMAZEPINE [Interacting]
     Active Substance: CARBAMAZEPINE
     Dosage: 1800 MILLIGRAM, ONCE A DAY 600 MG, TID, DAY 3 (IN 3 SEPARATE DOSES) OR 10 MG/KG/DAY
     Route: 065

REACTIONS (8)
  - Abdominal pain [Recovering/Resolving]
  - Asthenia [Recovering/Resolving]
  - Dizziness [Recovering/Resolving]
  - Drug interaction [Recovering/Resolving]
  - Headache [Recovering/Resolving]
  - Nausea [Recovering/Resolving]
  - Vision blurred [Recovering/Resolving]
  - Overdose [Recovering/Resolving]
